FAERS Safety Report 6347214-1 (Version None)
Quarter: 2009Q3

REPORT INFORMATION
  Report Type: 
  Country: None (occurrence: None)
  Receive Date: 20090908
  Receipt Date: 20090908
  Transmission Date: 20100115
  Serious: Yes (Life-Threatening, Hospitalization)
  Sender: FDA-Public Use
  Company Number: None

PATIENT
  Age: 76 Year
  Sex: Male
  Weight: 60.3284 kg

DRUGS (2)
  1. ZOCOR [Suspect]
     Indication: BLOOD CHOLESTEROL INCREASED
     Dosage: 80MG ONCE DAILY PO
     Route: 048
     Dates: start: 20090727, end: 20090821
  2. ZOCOR [Suspect]
     Indication: MYOCARDIAL INFARCTION
     Dosage: 80MG ONCE DAILY PO
     Route: 048
     Dates: start: 20090727, end: 20090821

REACTIONS (6)
  - FEELING ABNORMAL [None]
  - GAIT DISTURBANCE [None]
  - PULMONARY OEDEMA [None]
  - RENAL FAILURE ACUTE [None]
  - RHABDOMYOLYSIS [None]
  - WEIGHT INCREASED [None]
